FAERS Safety Report 13682088 (Version 4)
Quarter: 2017Q3

REPORT INFORMATION
  Report Type: Spontaneous
  Country: BR (occurrence: BR)
  Receive Date: 20170623
  Receipt Date: 20170804
  Transmission Date: 20171127
  Serious: Yes (Death, Hospitalization, Other)
  Sender: FDA-Public Use
  Company Number: BR-009507513-1706BRA008144

PATIENT
  Age: 85 Year
  Sex: Male
  Weight: 60 kg

DRUGS (8)
  1. ATENOLOL. [Concomitant]
     Active Substance: ATENOLOL
     Indication: HYPERTENSION
     Dosage: 1 TABLET (50 MG) IN THE MORNING
     Route: 048
  2. ATORVASTATIN [Concomitant]
     Active Substance: ATORVASTATIN
     Indication: BLOOD CHOLESTEROL ABNORMAL
     Dosage: 1 TABLET (10 MG) AFTER DINNER
     Route: 048
  3. LIDOCAINE. [Concomitant]
     Active Substance: LIDOCAINE
     Dosage: UNK, ONCE
     Dates: start: 20170611, end: 20170611
  4. LIDOCAINE. [Concomitant]
     Active Substance: LIDOCAINE
     Dosage: UNK, ONCE
     Dates: start: 20170610, end: 20170610
  5. METFORMIN HYDROCHLORIDE. [Concomitant]
     Active Substance: METFORMIN HYDROCHLORIDE
     Indication: DIABETES MELLITUS
     Dosage: 1 TABLET (850 MG) AFTER DINNER
     Route: 048
  6. AMLODIPINE [Concomitant]
     Active Substance: AMLODIPINE BESYLATE
     Indication: HYPERTENSION
     Dosage: 1 TABLET (5 MG) EACH 12 HOURS
     Route: 048
  7. INVANZ [Suspect]
     Active Substance: ERTAPENEM SODIUM
     Indication: URINARY TRACT INFECTION
     Dosage: UNK, ONCE DAILY
     Route: 030
     Dates: start: 20170610, end: 20170611
  8. FUROSEMIDE. [Concomitant]
     Active Substance: FUROSEMIDE
     Indication: HYPERTENSION
     Dosage: 1 TABLET (40 MG) IN THE MORNING
     Route: 048

REACTIONS (14)
  - Respiratory failure [Recovering/Resolving]
  - Tracheostomy infection [Unknown]
  - Feeding disorder [Not Recovered/Not Resolved]
  - Arrhythmia [Not Recovered/Not Resolved]
  - Bradycardia [Not Recovered/Not Resolved]
  - Movement disorder [Not Recovered/Not Resolved]
  - Confusional state [Not Recovered/Not Resolved]
  - Renal failure [Not Recovered/Not Resolved]
  - Coma [Unknown]
  - Speech disorder [Not Recovered/Not Resolved]
  - Agitation [Unknown]
  - Death [Fatal]
  - Adverse event [Not Recovered/Not Resolved]
  - Catheter site infection [Unknown]

NARRATIVE: CASE EVENT DATE: 2017
